FAERS Safety Report 25056719 (Version 2)
Quarter: 2025Q2

REPORT INFORMATION
  Report Type: Spontaneous
  Country: CA (occurrence: CA)
  Receive Date: 20250310
  Receipt Date: 20250521
  Transmission Date: 20250717
  Serious: Yes (Death, Hospitalization)
  Sender: CELLTRION
  Company Number: CA-PFIZER INC-202400335960

PATIENT

DRUGS (1)
  1. INFLECTRA [Suspect]
     Active Substance: INFLIXIMAB-DYYB
     Indication: Crohn^s disease
     Route: 042
     Dates: start: 20241025

REACTIONS (2)
  - Hepatic cancer metastatic [Fatal]
  - Sepsis [Unknown]

NARRATIVE: CASE EVENT DATE: 20240101
